FAERS Safety Report 24345304 (Version 1)
Quarter: 2024Q3

REPORT INFORMATION
  Report Type: Spontaneous
  Country: CN (occurrence: CN)
  Receive Date: 20240920
  Receipt Date: 20240920
  Transmission Date: 20241016
  Serious: Yes (Hospitalization, Other)
  Sender: SANOFI AVENTIS
  Company Number: CN-SA-2024SA269657

PATIENT
  Age: 69 Year
  Sex: Female
  Weight: 44 kg

DRUGS (3)
  1. OXALIPLATIN [Suspect]
     Active Substance: OXALIPLATIN
     Indication: Chemotherapy
     Dosage: 150 MG, 1X;D1;} 3 HOURS
     Route: 041
     Dates: start: 20240818, end: 20240818
  2. CAPECITABINE [Concomitant]
     Active Substance: CAPECITABINE
     Indication: Chemotherapy
     Dosage: 1.5 G, BID;D1-14
     Route: 048
     Dates: start: 20240818, end: 20240820
  3. DEXTROSE [Concomitant]
     Active Substance: DEXTROSE\DEXTROSE MONOHYDRATE
     Indication: Vehicle solution use
     Dosage: 500 ML, QD
     Route: 041
     Dates: start: 20240818, end: 20240818

REACTIONS (2)
  - Hepatic function abnormal [Recovering/Resolving]
  - White blood cell count decreased [Recovered/Resolved]

NARRATIVE: CASE EVENT DATE: 20240905
